FAERS Safety Report 13074088 (Version 3)
Quarter: 2019Q2

REPORT INFORMATION
  Report Type: Spontaneous
  Country: CA (occurrence: CA)
  Receive Date: 20161229
  Receipt Date: 20190530
  Transmission Date: 20190711
  Serious: Yes (Other)
  Sender: FDA-Public Use
  Company Number: CA-CONCORDIA PHARMACEUTICALS INC.-E2B_00007954

PATIENT
  Age: 74 Year
  Sex: Female

DRUGS (8)
  1. LEVOTHYROXINE. [Concomitant]
     Active Substance: LEVOTHYROXINE
  2. RAMIPRIL. [Concomitant]
     Active Substance: RAMIPRIL
  3. AMLODIPINE [Concomitant]
     Active Substance: AMLODIPINE BESYLATE
  4. HYDROXYCHLOROQUINE [Suspect]
     Active Substance: HYDROXYCHLOROQUINE
     Indication: SYSTEMIC LUPUS ERYTHEMATOSUS
     Dosage: 400 MG/D FOR 6 D/WK SINCE 2002
     Route: 065
     Dates: start: 2002
  5. ATENOLOL. [Concomitant]
     Active Substance: ATENOLOL
  6. WARFARIN [Concomitant]
     Active Substance: WARFARIN
  7. HYDROXYCHLOROQUINE [Suspect]
     Active Substance: HYDROXYCHLOROQUINE
     Dosage: 6.5 MG/KG
     Route: 065
     Dates: end: 2014
  8. PREDNISONE. [Concomitant]
     Active Substance: PREDNISONE
     Dates: start: 1964

REACTIONS (22)
  - Chest pain [Recovering/Resolving]
  - Right atrial dilatation [Recovering/Resolving]
  - Left ventricular hypertrophy [Recovering/Resolving]
  - Hypertrophic cardiomyopathy [Recovering/Resolving]
  - Bundle branch block left [Recovering/Resolving]
  - Dyspnoea paroxysmal nocturnal [Recovering/Resolving]
  - Endocardial fibrosis [Recovering/Resolving]
  - Atrial fibrillation [Unknown]
  - Oedema peripheral [Recovering/Resolving]
  - Bundle branch block right [Recovering/Resolving]
  - Dyspnoea exertional [Recovering/Resolving]
  - Myocardial fibrosis [Recovering/Resolving]
  - Mitral valve incompetence [Recovered/Resolved]
  - Chest discomfort [Recovering/Resolving]
  - Left ventricular dysfunction [Recovering/Resolving]
  - Atrioventricular block first degree [Recovering/Resolving]
  - Right ventricular hypertrophy [Recovering/Resolving]
  - Cardiomegaly [Recovering/Resolving]
  - Cardiac septal hypertrophy [Recovering/Resolving]
  - Left ventricular dysfunction [Recovering/Resolving]
  - Left atrial dilatation [Recovering/Resolving]
  - Diastolic dysfunction [Recovering/Resolving]

NARRATIVE: CASE EVENT DATE: 2012
